FAERS Safety Report 6886946-3 (Version None)
Quarter: 2010Q3

REPORT INFORMATION
  Report Type: 
  Country: None (occurrence: None)
  Receive Date: 20100730
  Receipt Date: 20100722
  Transmission Date: 20110219
  Serious: Yes (Hospitalization)
  Sender: FDA-Public Use
  Company Number: FR-NOVOPROD-311840

PATIENT
  Age: 46 Year
  Sex: Female

DRUGS (14)
  1. NOVONORM [Suspect]
     Indication: TYPE 2 DIABETES MELLITUS
     Dosage: 5 MG - 4 MG - 2 MG
     Route: 048
     Dates: start: 20100101
  2. IMUREL                             /00001501/ [Concomitant]
     Dosage: FROM 50 MG TO 100 MG TO 150 MG
     Dates: start: 19990601, end: 20100201
  3. CORTANCYL [Concomitant]
     Dosage: 60MG
     Dates: start: 19941001
  4. CORTANCYL [Concomitant]
     Dosage: 7MG
     Dates: start: 19990701
  5. CORTANCYL [Concomitant]
     Dosage: 1MG
     Dates: start: 20080401
  6. CORTANCYL [Concomitant]
     Dosage: 60MG
     Dates: start: 20100101
  7. CORTANCYL [Concomitant]
     Dosage: 80MG
     Dates: start: 20100211, end: 20100301
  8. CORTANCYL [Concomitant]
     Dosage: 60MG
     Dates: start: 20100302, end: 20100309
  9. CORTANCYL [Concomitant]
     Dosage: 40MG
     Dates: start: 20100310, end: 20100407
  10. DELURSAN [Concomitant]
     Dosage: 3-0-3
     Dates: start: 20091201
  11. DIFFU K [Concomitant]
     Dosage: 3-0-0
     Dates: start: 20091201
  12. LEVONORGESTREL AND ETHINYL ESTRADIOL [Concomitant]
  13. NEORAL [Suspect]
     Dosage: UNK
     Dates: start: 20100224
  14. BACTRIM [Suspect]
     Dosage: 400MG/80MG
     Dates: start: 20100224, end: 20100301

REACTIONS (2)
  - CONDITION AGGRAVATED [None]
  - CYTOLYTIC HEPATITIS [None]
